FAERS Safety Report 16093940 (Version 3)
Quarter: 2019Q2

REPORT INFORMATION
  Report Type: Spontaneous
  Country: JP (occurrence: JP)
  Receive Date: 20190320
  Receipt Date: 20190404
  Transmission Date: 20190711
  Serious: Yes (Life-Threatening, Hospitalization, Other)
  Sender: FDA-Public Use
  Company Number: JP-AMGEN-JPNSP2018185566

PATIENT
  Age: 77 Year
  Sex: Male
  Weight: 69.4 kg

DRUGS (5)
  1. KYPROLIS [Suspect]
     Active Substance: CARFILZOMIB
     Dosage: 77 MILLIGRAM
     Route: 041
     Dates: start: 20181225, end: 20181225
  2. DEXART [Concomitant]
     Active Substance: DEXAMETHASONE SODIUM PHOSPHATE
     Indication: PLASMA CELL MYELOMA
     Dosage: 13.2 MG, 7 TIMES
     Route: 041
     Dates: start: 20181120, end: 20181225
  3. KYPROLIS [Suspect]
     Active Substance: CARFILZOMIB
     Indication: PLASMA CELL MYELOMA
     Dosage: 35 MILLIGRAM 2 TIMES
     Route: 041
     Dates: start: 20181120, end: 20181121
  4. DAIPHEN [Concomitant]
     Active Substance: SULFAMETHOXAZOLE\TRIMETHOPRIM
     Dosage: UNK
     Route: 065
  5. KYPROLIS [Suspect]
     Active Substance: CARFILZOMIB
     Dosage: 98 MILLIGRAM 4 TIMES
     Route: 041
     Dates: start: 20181127, end: 20181205

REACTIONS (6)
  - Infection [Unknown]
  - Acute kidney injury [Recovering/Resolving]
  - Dehydration [Unknown]
  - Cardiac failure acute [Recovered/Resolved]
  - Pneumonia [Recovered/Resolved]
  - Blood pressure decreased [Recovered/Resolved]

NARRATIVE: CASE EVENT DATE: 201812
